FAERS Safety Report 6275845-6 (Version None)
Quarter: 2009Q3

REPORT INFORMATION
  Report Type: 
  Country: None (occurrence: None)
  Receive Date: 20090721
  Receipt Date: 20090713
  Transmission Date: 20100115
  Serious: Yes (Hospitalization)
  Sender: FDA-Public Use
  Company Number: US-AMGEN-US351531

PATIENT
  Sex: Female
  Weight: 54.5 kg

DRUGS (13)
  1. NPLATE [Suspect]
     Indication: IDIOPATHIC THROMBOCYTOPENIC PURPURA
     Dates: start: 20090212, end: 20090401
  2. ATENOLOL [Concomitant]
  3. ADVAIR HFA [Concomitant]
  4. ZOLOFT [Concomitant]
  5. REGLAN [Concomitant]
  6. OS-CAL [Concomitant]
  7. SPIRONOLACTONE [Concomitant]
  8. FLONASE [Concomitant]
  9. COMBIVENT [Concomitant]
  10. HYDROCORTISONE ACETATE/PRAMOXINE HYDROCHLORIDE [Concomitant]
  11. ANTIVERT [Concomitant]
  12. XANAX [Concomitant]
  13. OXYGEN [Concomitant]

REACTIONS (3)
  - CLOSTRIDIUM DIFFICILE COLITIS [None]
  - IDIOPATHIC THROMBOCYTOPENIC PURPURA [None]
  - THROMBOCYTOPENIA [None]
